FAERS Safety Report 7557361-4 (Version None)
Quarter: 2011Q2

REPORT INFORMATION
  Report Type: 
  Country: None (occurrence: None)
  Receive Date: 20110620
  Receipt Date: 20110606
  Transmission Date: 20111010
  Serious: Yes (Hospitalization)
  Sender: FDA-Public Use
  Company Number: PHHY2011FR50334

PATIENT
  Age: 62 Year
  Sex: Male

DRUGS (7)
  1. COLCHICINE [Suspect]
     Indication: GOUT
     Dosage: 1 MG, BID
     Dates: start: 20100826, end: 20100913
  2. VANCOMYCIN [Concomitant]
     Dosage: UNK
  3. PIPERACILLIN AND TAZOBACTAM [Concomitant]
     Dosage: UNK
  4. NEXIUM [Concomitant]
     Dosage: UNK
  5. NEORAL [Suspect]
     Indication: RENAL TRANSPLANT
     Dosage: 50 MG, BID
  6. ORGARAN [Concomitant]
     Dosage: 750 IU, UNK
  7. FLUCONAZOLE [Concomitant]
     Dosage: UNK

REACTIONS (11)
  - SKIN REACTION [None]
  - FULL BLOOD COUNT ABNORMAL [None]
  - URETERIC ANASTOMOSIS COMPLICATION [None]
  - IMMUNOSUPPRESSANT DRUG LEVEL INCREASED [None]
  - RENAL IMPAIRMENT [None]
  - KIDNEY TRANSPLANT REJECTION [None]
  - LEUKOPENIA [None]
  - RESPIRATORY ARREST [None]
  - DIARRHOEA [None]
  - HEPATIC FUNCTION ABNORMAL [None]
  - MULTI-ORGAN FAILURE [None]
